FAERS Safety Report 4590094-5 (Version None)
Quarter: 2005Q1

REPORT INFORMATION
  Report Type: 
  Country: None (occurrence: None)
  Receive Date: 20050217
  Receipt Date: 20050209
  Transmission Date: 20050727
  Serious: Yes (Hospitalization)
  Sender: FDA-Public Use
  Company Number: 210949

PATIENT
  Age: 38 Year
  Sex: Male

DRUGS (12)
  1. MABTHERA (RITUXIMAB) CONC FOR SOLUTION FOR INFUSION [Suspect]
     Indication: WEGENER'S GRANULOMATOSIS
     Dosage: 1 G, INTRAVENOUS
     Route: 042
     Dates: start: 20040929
  2. CLARITHROMYCIN [Concomitant]
  3. TAZOCIN (PIPERACILLIN SODIUM, TAZOBACTAM SODIUM) [Concomitant]
  4. PENTAMIDINE (PENTAMIDINE) [Concomitant]
  5. PREDNISONE [Concomitant]
  6. NYSTATIN SUSPENSION (NYSTATIN) [Concomitant]
  7. ATENOLOL [Concomitant]
  8. SODIUM BICARBONATE IN PLASTIC CONTAINER [Concomitant]
  9. SALBUTAMOL (ALBUTEROL, ALBUTEROL SULFATE) [Concomitant]
  10. SALINE NEBULIZED (SODIUM CHLORIDE) [Concomitant]
  11. DILTIAZEM HCL [Concomitant]
  12. ERYTHROPOIETIN (EPOETIN NOS) [Concomitant]

REACTIONS (5)
  - CYTOMEGALOVIRUS INFECTION [None]
  - OBLITERATIVE BRONCHIOLITIS [None]
  - PANCYTOPENIA [None]
  - PNEUMOCYSTIS JIROVECI PNEUMONIA [None]
  - POLYMERASE CHAIN REACTION [None]
